FAERS Safety Report 24195929 (Version 1)
Quarter: 2024Q3

REPORT INFORMATION
  Report Type: Spontaneous
  Country: FR (occurrence: FR)
  Receive Date: 20240809
  Receipt Date: 20240809
  Transmission Date: 20241016
  Serious: Yes (Disabling, Other)
  Sender: SANOFI AVENTIS
  Company Number: None

PATIENT
  Age: 73 Year
  Sex: Male

DRUGS (7)
  1. OXALIPLATIN [Suspect]
     Active Substance: OXALIPLATIN
     Indication: Pancreatic carcinoma
     Dosage: 145 MG
     Route: 042
     Dates: start: 20231229, end: 20240209
  2. LEVOLEUCOVORIN CALCIUM [Concomitant]
     Active Substance: LEVOLEUCOVORIN CALCIUM
     Dosage: 350 MG
     Route: 042
     Dates: start: 20231229, end: 20240209
  3. EMEND [Concomitant]
     Active Substance: APREPITANT
     Dosage: 280 MG
     Route: 048
     Dates: start: 20231229
  4. ONDANSETRON [Concomitant]
     Active Substance: ONDANSETRON
     Dosage: 1 DF
     Route: 042
     Dates: start: 20231229
  5. FLUOROURACIL [Concomitant]
     Active Substance: FLUOROURACIL
     Dosage: 3300 MG
     Route: 042
     Dates: start: 20231229, end: 20240209
  6. IRINOTECAN [Concomitant]
     Active Substance: IRINOTECAN
     Dosage: 1 DF, TOTAL
     Route: 042
     Dates: start: 20231229, end: 20231229
  7. METHYLPREDNISOLONE [Concomitant]
     Active Substance: METHYLPREDNISOLONE
     Dosage: 60 MG
     Route: 042
     Dates: start: 20231229, end: 20240209

REACTIONS (1)
  - Deafness neurosensory [Recovered/Resolved with Sequelae]

NARRATIVE: CASE EVENT DATE: 20240301
